FAERS Safety Report 6370181-1 (Version None)
Quarter: 2009Q3

REPORT INFORMATION
  Report Type: 
  Country: None (occurrence: None)
  Receive Date: 20090921
  Receipt Date: 20090921
  Transmission Date: 20100115
  Serious: Yes (Other)
  Sender: FDA-Public Use
  Company Number: None

PATIENT
  Age: 80 Year
  Sex: Female
  Weight: 65.7716 kg

DRUGS (2)
  1. QUETIAPINE FUMARATE [Suspect]
     Indication: BIPOLAR DISORDER
     Dosage: 25 MG BID FOR 2 1/2 YRS
     Dates: start: 20060201, end: 20090101
  2. DEPAKOTE [Suspect]
     Indication: BIPOLAR DISORDER
     Dosage: 25MG  2.5 YRS
     Dates: start: 19940101, end: 19970101

REACTIONS (6)
  - DEPRESSION [None]
  - DRUG INEFFECTIVE [None]
  - DYSKINESIA [None]
  - ORAL DISORDER [None]
  - TONGUE DISORDER [None]
  - TOOTH DISORDER [None]
